FAERS Safety Report 15811131 (Version 2)
Quarter: 2019Q1

REPORT INFORMATION
  Report Type: Spontaneous
  Country: US (occurrence: US)
  Receive Date: 20190111
  Receipt Date: 20190305
  Transmission Date: 20190417
  Serious: No
  Sender: FDA-Public Use
  Company Number: US-LUPIN PHARMACEUTICALS INC.-2018-09119

PATIENT
  Age: 75 Year
  Sex: Female
  Weight: 59.41 kg

DRUGS (3)
  1. GAVILAX [Suspect]
     Active Substance: POLYETHYLENE GLYCOL 3350
     Indication: CONSTIPATION
     Dosage: 17 G, QD, AT NIGHT
     Route: 048
     Dates: start: 20181126
  2. AMITIZA [Concomitant]
     Active Substance: LUBIPROSTONE
     Indication: PAIN
     Dosage: UNK
     Route: 048
  3. DULCOLAX (BISACODYL) [Concomitant]
     Active Substance: BISACODYL
     Indication: CONSTIPATION
     Dosage: UNK
     Route: 048

REACTIONS (3)
  - Faeces hard [Not Recovered/Not Resolved]
  - Drug ineffective [Unknown]
  - Dyschezia [Not Recovered/Not Resolved]

NARRATIVE: CASE EVENT DATE: 20181126
